FAERS Safety Report 18545907 (Version 1)
Quarter: 2020Q4

REPORT INFORMATION
  Report Type: Spontaneous
  Country: BR (occurrence: BR)
  Receive Date: 20201125
  Receipt Date: 20201125
  Transmission Date: 20210114
  Serious: Yes (Life-Threatening)
  Sender: FDA-Public Use
  Company Number: BR-DRREDDYS-GPV/BRA/20/0129526

PATIENT
  Age: 65 Year
  Sex: Male

DRUGS (8)
  1. WINDUZA [Suspect]
     Active Substance: AZACITIDINE
     Route: 058
     Dates: start: 20200729
  2. WINDUZA [Suspect]
     Active Substance: AZACITIDINE
     Route: 058
     Dates: start: 20201007, end: 20201016
  3. WINDUZA [Suspect]
     Active Substance: AZACITIDINE
     Route: 058
     Dates: start: 20200909, end: 20200917
  4. LOSARTANA [Concomitant]
     Active Substance: LOSARTAN
     Indication: PRODUCT USED FOR UNKNOWN INDICATION
  5. OMEPRAZOLE. [Concomitant]
     Active Substance: OMEPRAZOLE
     Indication: PRODUCT USED FOR UNKNOWN INDICATION
  6. WINDUZA [Suspect]
     Active Substance: AZACITIDINE
     Route: 058
     Dates: start: 20200604
  7. WINDUZA [Suspect]
     Active Substance: AZACITIDINE
     Indication: ACUTE MYELOID LEUKAEMIA
     Route: 058
     Dates: start: 20200506, end: 20200514
  8. METFORMINA [Concomitant]
     Active Substance: METFORMIN HYDROCHLORIDE
     Indication: PRODUCT USED FOR UNKNOWN INDICATION

REACTIONS (1)
  - Therapeutic product ineffective [Not Recovered/Not Resolved]
